FAERS Safety Report 14958355 (Version 2)
Quarter: 2022Q2

REPORT INFORMATION
  Report Type: Spontaneous
  Country: ES (occurrence: ES)
  Receive Date: 20180531
  Receipt Date: 20220614
  Transmission Date: 20220720
  Serious: Yes (Other)
  Sender: FDA-Public Use
  Company Number: ES-AUROBINDO-AUR-APL-2018-027978

PATIENT
  Age: 56 Year
  Sex: Male
  Weight: 111.6 kg

DRUGS (9)
  1. LAMIVUDINE [Suspect]
     Active Substance: LAMIVUDINE
     Indication: Product used for unknown indication
     Dosage: UNK
     Route: 065
  2. ABACAVIR [Suspect]
     Active Substance: ABACAVIR
     Indication: Weight decreased
     Dosage: 1 DOSAGE FORM, DAILY (1 CAPSULE)
     Route: 065
     Dates: start: 2013
  3. OTEZLA [Suspect]
     Active Substance: APREMILAST
     Indication: Psoriatic arthropathy
     Dosage: 30 MILLIGRAM, TWO TIMES A DAY(60 MILLIGRAM)
     Route: 048
     Dates: start: 20170912
  4. PITAVASTATIN [Suspect]
     Active Substance: PITAVASTATIN
     Indication: Dyslipidaemia
     Dosage: 1 DOSAGE FORM, DAILY, 1 CAPSULE
     Route: 065
     Dates: start: 2015
  5. RALTEGRAVIR [Suspect]
     Active Substance: RALTEGRAVIR
     Indication: Weight decreased
     Dosage: 1 DOSAGE FORM, DAILY(1 CAPSULE)
     Route: 065
     Dates: start: 2013
  6. METFORMIN\SITAGLIPTIN [Suspect]
     Active Substance: METFORMIN\SITAGLIPTIN
     Indication: Diabetes mellitus
     Dosage: 2 DOSAGE FORM, DAILY(2 CAPSULES)
     Route: 065
  7. ESCITALOPRAM [Concomitant]
     Active Substance: ESCITALOPRAM OXALATE
     Indication: Anxiety
     Dosage: 1 DOSAGE FORM, ONCE A DAY
     Route: 065
     Dates: start: 2007
  8. ISENTRESS [Concomitant]
     Active Substance: RALTEGRAVIR POTASSIUM
     Indication: HIV infection
     Dosage: 1 {DF}, 1 CAPSULE
     Route: 065
     Dates: start: 2014
  9. TIAPRIDE [Concomitant]
     Active Substance: TIAPRIDE
     Indication: Alcohol detoxification
     Dosage: 1 DOSAGE FORM, DAILY, 1 CAPSULE
     Route: 065
     Dates: start: 2015

REACTIONS (3)
  - Weight decreased [Unknown]
  - Diarrhoea [Recovered/Resolved]
  - Decreased appetite [Recovered/Resolved]

NARRATIVE: CASE EVENT DATE: 20170912
